FAERS Safety Report 4683827-0 (Version None)
Quarter: 2005Q2

REPORT INFORMATION
  Report Type: 
  Country: None (occurrence: None)
  Receive Date: 20050607
  Receipt Date: 20050524
  Transmission Date: 20051028
  Serious: Yes (Hospitalization)
  Sender: FDA-Public Use
  Company Number: GB-JNJFOC-20050601275

PATIENT
  Age: 80 Year
  Sex: Female

DRUGS (5)
  1. TRAMADOL HCL [Suspect]
     Indication: DRUG USE FOR UNKNOWN INDICATION
     Route: 049
  2. CO-TENIDONE [Concomitant]
     Route: 049
  3. CO-TENIDONE [Concomitant]
     Route: 049
  4. ALLOPURINOL [Concomitant]
     Route: 049
  5. GLICLAZIDE [Concomitant]
     Route: 049

REACTIONS (6)
  - AGITATION [None]
  - CONFUSIONAL STATE [None]
  - CONSTIPATION [None]
  - NAUSEA [None]
  - RESTLESSNESS [None]
  - VOMITING [None]
